FAERS Safety Report 13737174 (Version 3)
Quarter: 2017Q3

REPORT INFORMATION
  Report Type: Report from Study
  Country: US (occurrence: US)
  Receive Date: 20170710
  Receipt Date: 20170824
  Transmission Date: 20171127
  Serious: Yes (Other)
  Sender: FDA-Public Use
  Company Number: PHEH2017US020270

PATIENT
  Age: 65 Year
  Sex: Female
  Weight: 77.98 kg

DRUGS (2)
  1. GILENYA [Suspect]
     Active Substance: FINGOLIMOD HYDROCHLORIDE
     Indication: MULTIPLE SCLEROSIS
     Dosage: 0.5 MG, QD
     Route: 048
     Dates: end: 201706
  2. GILENYA [Suspect]
     Active Substance: FINGOLIMOD HYDROCHLORIDE
     Dosage: 0.5 MG, QD
     Route: 048
     Dates: start: 20170704

REACTIONS (5)
  - Pain in extremity [Recovering/Resolving]
  - Fear [Unknown]
  - Dizziness [Recovering/Resolving]
  - Multiple sclerosis relapse [Recovering/Resolving]
  - Thinking abnormal [Recovering/Resolving]

NARRATIVE: CASE EVENT DATE: 20170704
